FAERS Safety Report 6504066-4 (Version None)
Quarter: 2009Q4

REPORT INFORMATION
  Report Type: 
  Country: None (occurrence: None)
  Receive Date: 20091216
  Receipt Date: 20091216
  Transmission Date: 20100525
  Serious: Yes (Disabling)
  Sender: FDA-Public Use
  Company Number: None

PATIENT
  Age: 79 Year
  Sex: Male
  Weight: 82.3 kg

DRUGS (1)
  1. CELADRIN EXTRA STRENGTH IMAGENETICS, INC. [Suspect]
     Indication: OSTEOARTHRITIS
     Dosage: EXTRA STRENGTH QD PO
     Route: 048

REACTIONS (4)
  - ARTHRALGIA [None]
  - DISEASE RECURRENCE [None]
  - GAIT DISTURBANCE [None]
  - MYALGIA [None]
